FAERS Safety Report 12663047 (Version 1)
Quarter: 2016Q3

REPORT INFORMATION
  Report Type: Spontaneous
  Country: US (occurrence: None)
  Receive Date: 20160817
  Receipt Date: 20160817
  Transmission Date: 20161109
  Serious: No
  Sender: FDA-Public Use
  Company Number: None

PATIENT
  Age: 45 Year
  Sex: Male
  Weight: 73.94 kg

DRUGS (4)
  1. GENERIC WALGREENS BRAND MULTIVITAMIN [Concomitant]
  2. CLARITIN [Concomitant]
     Active Substance: LORATADINE
  3. SINGULAIR [Concomitant]
     Active Substance: MONTELUKAST SODIUM
  4. MOMETASONE FUROATE MONOHYDRATE, 50 MCG [Suspect]
     Active Substance: MOMETASONE FUROATE MONOHYDRATE
     Indication: RHINITIS ALLERGIC
     Route: 045
     Dates: start: 20160516, end: 20160810

REACTIONS (3)
  - Hypogeusia [None]
  - Product substitution issue [None]
  - Dysgeusia [None]

NARRATIVE: CASE EVENT DATE: 20160810
